FAERS Safety Report 9967384 (Version 2)
Quarter: 2014Q1

REPORT INFORMATION
  Report Type: Report from Study
  Country: PR (occurrence: PR)
  Receive Date: 20140305
  Receipt Date: 20140305
  Transmission Date: 20141002
  Serious: No
  Sender: FDA-Public Use
  Company Number: PR-ABBVIE-12P-131-0893347-00

PATIENT
  Age: 53 Year
  Sex: Female
  Weight: 87.17 kg

DRUGS (8)
  1. HUMIRA [Suspect]
     Indication: PSORIASIS
     Route: 058
     Dates: end: 201201
  2. LOSARTAN [Concomitant]
     Indication: HYPERTENSION
     Route: 048
  3. NORVASC [Concomitant]
     Indication: HYPERTENSION
     Route: 048
  4. VASOTEC [Concomitant]
     Indication: HYPERTENSION
     Route: 048
  5. COREG [Concomitant]
     Indication: HYPERTENSION
     Route: 048
  6. PEPCID [Concomitant]
     Indication: PROPHYLAXIS
  7. METHOTREXATE [Concomitant]
     Indication: PSORIASIS
     Route: 048
  8. FOLIC ACID [Concomitant]
     Indication: PSORIASIS
     Route: 048

REACTIONS (1)
  - Hepatic enzyme increased [Recovered/Resolved]
